FAERS Safety Report 6663515-1 (Version None)
Quarter: 2010Q2

REPORT INFORMATION
  Report Type: 
  Country: None (occurrence: None)
  Receive Date: 20100401
  Receipt Date: 20100326
  Transmission Date: 20101027
  Serious: Yes (Death)
  Sender: FDA-Public Use
  Company Number: AU-SANOFI-AVENTIS-2010SA017718

PATIENT
  Age: 72 Year
  Sex: Male
  Weight: 36 kg

DRUGS (2)
  1. RILUTEK [Suspect]
     Indication: DRUG USE FOR UNKNOWN INDICATION
     Dates: start: 20090712, end: 20100101
  2. MORPHINE [Concomitant]
     Indication: CONDITION AGGRAVATED
     Dates: end: 20100101

REACTIONS (1)
  - RESPIRATORY ARREST [None]
